FAERS Safety Report 9630337 (Version 2)
Quarter: 2013Q4

REPORT INFORMATION
  Report Type: Spontaneous
  Country: US (occurrence: US)
  Receive Date: 20131018
  Receipt Date: 20131101
  Transmission Date: 20140711
  Serious: Yes (Other)
  Sender: FDA-Public Use
  Company Number: US-009507513-1310USA005213

PATIENT
  Sex: Female

DRUGS (5)
  1. DULERA [Suspect]
     Indication: ASTHMA
     Dosage: 100 MCG/5 MCG; 2 PUFFS, BID
     Route: 055
     Dates: start: 201308
  2. FUROSEMIDE [Concomitant]
     Dosage: HALF A TABLET DAILY
     Route: 048
  3. COZAAR [Concomitant]
     Dosage: UNK UNK, QD
     Route: 048
  4. AMLODIPINE [Concomitant]
     Dosage: UNK, QD
  5. OMEPRAZOLE [Concomitant]
     Dosage: UNK, QD

REACTIONS (4)
  - Aphonia [Recovering/Resolving]
  - Oropharyngeal pain [Recovering/Resolving]
  - Candida infection [Unknown]
  - Product taste abnormal [Unknown]
